FAERS Safety Report 4895422-9 (Version None)
Quarter: 2006Q1

REPORT INFORMATION
  Report Type: 
  Country: None (occurrence: None)
  Receive Date: 20060130
  Receipt Date: 20060105
  Transmission Date: 20060701
  Serious: No
  Sender: FDA-Public Use
  Company Number: US-MERCK-0601USA00679

PATIENT
  Age: 83 Year
  Sex: Male
  Weight: 73 kg

DRUGS (6)
  1. COZAAR [Suspect]
     Indication: HYPERTENSION
     Route: 048
     Dates: start: 20051122, end: 20051129
  2. COUMADIN [Concomitant]
     Indication: ATRIAL FIBRILLATION
     Route: 048
     Dates: start: 19930101
  3. NORVASC [Concomitant]
     Indication: HYPERTENSION
     Route: 048
     Dates: start: 19941006
  4. LASIX [Concomitant]
     Indication: CARDIAC FAILURE CONGESTIVE
     Route: 048
     Dates: start: 20011204
  5. K-DUR 10 [Concomitant]
     Indication: ROUTINE HEALTH MAINTENANCE
     Route: 048
     Dates: start: 20011204
  6. FOLTX [Concomitant]
     Indication: CARDIAC DISORDER
     Route: 048
     Dates: start: 20040413

REACTIONS (2)
  - BLINDNESS TRANSIENT [None]
  - VISUAL ACUITY REDUCED [None]
